FAERS Safety Report 9329282 (Version 1)
Quarter: 2013Q2

REPORT INFORMATION
  Report Type: Spontaneous
  Country: US (occurrence: US)
  Receive Date: 20130604
  Receipt Date: 20130604
  Transmission Date: 20140414
  Serious: No
  Sender: FDA-Public Use
  Company Number: US-SANOFI-AVENTIS-2013SA025058

PATIENT
  Age: 79 Year
  Sex: Female
  Weight: 88 kg

DRUGS (17)
  1. SOLOSTAR [Suspect]
     Indication: DIABETES MELLITUS
     Dates: start: 20081010
  2. LANTUS SOLOSTAR [Suspect]
     Dosage: DOSE:68 UNIT(S)
     Route: 051
     Dates: start: 20081010
  3. CLOPIDOGREL [Concomitant]
  4. SYNTHROID [Concomitant]
  5. MICARDIS [Concomitant]
     Dosage: 80/12.5
  6. BISOPROLOL [Concomitant]
     Indication: HYPERTENSION
  7. LANSOPRAZOLE [Concomitant]
     Indication: GASTROOESOPHAGEAL REFLUX DISEASE
  8. LIPITOR [Concomitant]
  9. SIMPLE EYE OINTMENT [Concomitant]
  10. HUMALOG [Concomitant]
     Indication: DIABETES MELLITUS
     Dosage: 5-17 U
  11. LANTUS [Concomitant]
     Dosage: DOSE:68 UNIT(S)
  12. VITAMIN E [Concomitant]
  13. VITAMIN B [Concomitant]
  14. CALCIUM [Concomitant]
     Dosage: 500 IU
  15. VITAMIN D [Concomitant]
  16. EQUATE [Concomitant]
     Dosage: 1 TSP
  17. OMEGA 3 [Concomitant]

REACTIONS (2)
  - Pain [Not Recovered/Not Resolved]
  - Injection site pain [Not Recovered/Not Resolved]
